FAERS Safety Report 24593531 (Version 1)
Quarter: 2024Q4

REPORT INFORMATION
  Report Type: Spontaneous
  Country: GB (occurrence: GB)
  Receive Date: 20241108
  Receipt Date: 20241108
  Transmission Date: 20250115
  Serious: Yes (Hospitalization, Disabling, Other)
  Sender: TORRENT PHARMA INC.
  Company Number: None

PATIENT
  Age: 19 Year
  Sex: Female
  Weight: 58 kg

DRUGS (1)
  1. LAMOTRIGINE [Suspect]
     Active Substance: LAMOTRIGINE
     Indication: Cyclothymic disorder
     Dosage: 25MG OD ORIGINALLY, INCREASED TO 50MG OD ON 13/10/24
     Route: 065
     Dates: start: 20240922, end: 20241009

REACTIONS (2)
  - Stevens-Johnson syndrome [Recovering/Resolving]
  - Feeding disorder [Unknown]

NARRATIVE: CASE EVENT DATE: 20240922
